FAERS Safety Report 5553834-4 (Version None)
Quarter: 2007Q4

REPORT INFORMATION
  Report Type: 
  Country: None (occurrence: None)
  Receive Date: 20071213
  Receipt Date: 20071204
  Transmission Date: 20080405
  Serious: Yes (Hospitalization)
  Sender: FDA-Public Use
  Company Number: GB-ROCHE-534827

PATIENT
  Age: 63 Year
  Sex: Male
  Weight: 108 kg

DRUGS (6)
  1. CAPECITABINE [Suspect]
     Indication: COLON CANCER
     Route: 048
     Dates: start: 20071105
  2. BEVACIZUMAB [Suspect]
     Indication: COLON CANCER
     Route: 042
     Dates: start: 20071105
  3. ATENOLOL [Suspect]
     Indication: HYPERTENSION
     Dosage: OTHER INDICATION: CARDIAC; PATIENT WAS TAKING ATENOLOL FOR YEARS.
     Route: 048
  4. ASPIRIN [Suspect]
     Indication: HYPERTENSION
     Dosage: OTHER INDICATION: CARDIAC; PATIENT HAD BEEN TAKING IT FOR YEARS.
     Route: 048
  5. SIMVASTATIN [Suspect]
     Indication: HYPERTENSION
     Dosage: OTHER INDICATION: CARDIAC; PATIENT HAD BEEN TAKING IT FOR YEARS.
     Route: 048
  6. AMLODIPINE [Suspect]
     Indication: HYPERTENSION
     Dosage: OTHER INDICATION: CARDIAC; PATIENT HAD BEEN TAKING IT FOR YEARS.
     Route: 048

REACTIONS (1)
  - PANCREATITIS [None]
